FAERS Safety Report 9574578 (Version 2)
Quarter: 2013Q4

REPORT INFORMATION
  Report Type: Spontaneous
  Country: JP (occurrence: JP)
  Receive Date: 20131001
  Receipt Date: 20131003
  Transmission Date: 20140711
  Serious: Yes (Other)
  Sender: FDA-Public Use
  Company Number: JP-BAXTER-2013BAX037741

PATIENT
  Age: 62 Year
  Sex: Female

DRUGS (12)
  1. KIOVIG SOLUTION FOR INFUSION 10% [Suspect]
     Indication: STILL^S DISEASE ADULT ONSET
     Route: 065
  2. METHYLPREDNISOLONE [Concomitant]
     Indication: STILL^S DISEASE ADULT ONSET
     Route: 065
  3. TACROLIMUS [Concomitant]
     Indication: STILL^S DISEASE ADULT ONSET
     Route: 065
  4. TACROLIMUS [Concomitant]
     Route: 065
  5. TACROLIMUS [Concomitant]
     Route: 065
  6. TOCILIZUMAB [Concomitant]
     Indication: STILL^S DISEASE ADULT ONSET
     Route: 065
  7. PREDNISOLONE [Concomitant]
     Indication: STILL^S DISEASE ADULT ONSET
     Route: 065
  8. PREDNISOLONE [Concomitant]
     Route: 065
  9. PREDNISOLONE [Concomitant]
     Route: 065
  10. PREDNISOLONE [Concomitant]
     Route: 065
  11. CYCLOSPORINE [Concomitant]
     Indication: STILL^S DISEASE ADULT ONSET
     Route: 065
  12. CYCLOSPORINE [Concomitant]
     Route: 065

REACTIONS (1)
  - Drug ineffective [Not Recovered/Not Resolved]
